FAERS Safety Report 8259586-1 (Version None)
Quarter: 2012Q2

REPORT INFORMATION
  Report Type: 
  Country: None (occurrence: None)
  Receive Date: 20120404
  Receipt Date: 20120327
  Transmission Date: 20120825
  Serious: Yes (Other)
  Sender: FDA-Public Use
  Company Number: PHHY2012BR018068

PATIENT
  Age: 73 Year
  Sex: Female

DRUGS (6)
  1. DIOVAN HCT [Suspect]
     Dosage: 2 DF (160/12.5 MG), DAILY
  2. HYGROTON [Concomitant]
     Indication: DIURETIC THERAPY
     Dosage: 12.5 MG, DAILY
  3. MAXAPRAN [Concomitant]
     Indication: HYPERTENSION
     Dosage: 20 MG, QD (IN THE MORNING)
  4. DIOVAN HCT [Suspect]
     Indication: HYPERTENSION
     Dosage: 1 DF (160/12.5 MG), DAILY
  5. CLONIDINE HYDROCHLORIDE [Concomitant]
     Dosage: 200 MG, DAILY
  6. ALPRAZOLAM [Concomitant]
     Indication: DEPRESSION
     Dosage: 0.5 MG, DAILY

REACTIONS (2)
  - DIABETES MELLITUS [None]
  - BLOOD PRESSURE INADEQUATELY CONTROLLED [None]
